FAERS Safety Report 4897967-4 (Version None)
Quarter: 2006Q1

REPORT INFORMATION
  Report Type: 
  Country: None (occurrence: None)
  Receive Date: 20060201
  Receipt Date: 20060120
  Transmission Date: 20060701
  Serious: Yes (Other)
  Sender: FDA-Public Use
  Company Number: PHBS2006GB01359

PATIENT
  Sex: Male

DRUGS (3)
  1. DESFERRIOXAMINE MESYLATE [Suspect]
     Indication: BLOOD IRON INCREASED
     Dosage: 36 MG/KG/DAY
     Route: 058
  2. DESFERRIOXAMINE MESYLATE [Suspect]
     Dosage: 2 UNITS EVERY 4 WEEKS
     Route: 042
  3. BLOOD AND RELATED PRODUCTS [Concomitant]

REACTIONS (5)
  - CARDIOMYOPATHY [None]
  - EJECTION FRACTION DECREASED [None]
  - SPLENECTOMY [None]
  - VENTRICULAR HYPERTROPHY [None]
  - VENTRICULAR INTERNAL DIAMETER ABNORMAL [None]
